FAERS Safety Report 5782136-6 (Version None)
Quarter: 2008Q2

REPORT INFORMATION
  Report Type: 
  Country: None (occurrence: None)
  Receive Date: 20080623
  Receipt Date: 20080616
  Transmission Date: 20081010
  Serious: Yes (Death, Hospitalization)
  Sender: FDA-Public Use
  Company Number: US-AMGEN-QUU267572

PATIENT
  Sex: Female

DRUGS (9)
  1. ENBREL [Suspect]
     Indication: RHEUMATOID ARTHRITIS
     Route: 058
     Dates: start: 20071129, end: 20071227
  2. OXYGEN [Concomitant]
  3. PREDNISONE TAB [Concomitant]
  4. HYZAAR [Concomitant]
     Route: 048
  5. METOPROLOL [Concomitant]
     Route: 048
  6. DICYCLOMINE HYDROCHLORIDE [Concomitant]
  7. NASONEX [Concomitant]
     Route: 048
  8. ACTONEL [Concomitant]
  9. OMEPRAZOLE [Concomitant]

REACTIONS (4)
  - ARTHRALGIA [None]
  - CYSTITIS [None]
  - PNEUMONIA [None]
  - RESPIRATORY FAILURE [None]
